FAERS Safety Report 8444906-5 (Version None)
Quarter: 2012Q2

REPORT INFORMATION
  Report Type: 
  Country: None (occurrence: None)
  Receive Date: 20120618
  Receipt Date: 20120604
  Transmission Date: 20120825
  Serious: Yes (Other)
  Sender: FDA-Public Use
  Company Number: US-BAYER-2012-056919

PATIENT
  Age: 44 Year
  Sex: Male
  Weight: 82 kg

DRUGS (1)
  1. RID 1-2-3 SYSTEM [Suspect]
     Indication: LICE INFESTATION
     Dosage: 1 DF, ONCE
     Route: 061
     Dates: start: 20120602, end: 20120602

REACTIONS (3)
  - EYE SWELLING [None]
  - RASH MACULAR [None]
  - AURICULAR SWELLING [None]
